FAERS Safety Report 15347768 (Version 1)
Quarter: 2018Q3

REPORT INFORMATION
  Report Type: Report from Study
  Country: US (occurrence: US)
  Receive Date: 20180904
  Receipt Date: 20180904
  Transmission Date: 20181010
  Serious: Yes (Other)
  Sender: FDA-Public Use
  Company Number: US-TESARO, INC-US-2018TSO03281

PATIENT
  Age: 69 Year
  Sex: Female
  Weight: 94.33 kg

DRUGS (3)
  1. ZEJULA [Suspect]
     Active Substance: NIRAPARIB
     Dosage: 100 MG, UNK
     Route: 048
  2. ZEJULA [Suspect]
     Active Substance: NIRAPARIB
     Dosage: 100 MG, QD
     Route: 048
     Dates: start: 20180625, end: 20180801
  3. ZEJULA [Suspect]
     Active Substance: NIRAPARIB
     Indication: OVARIAN CANCER
     Dosage: 300 MG, QD
     Route: 048
     Dates: start: 20180525, end: 20180612

REACTIONS (22)
  - Salpingitis [Not Recovered/Not Resolved]
  - Cervical polyp [Not Recovered/Not Resolved]
  - Fatigue [Not Recovered/Not Resolved]
  - Nausea [Not Recovered/Not Resolved]
  - Uterine abscess [Not Recovered/Not Resolved]
  - Pyrexia [Unknown]
  - Soft tissue inflammation [Not Recovered/Not Resolved]
  - Gastrointestinal pain [Unknown]
  - Influenza like illness [Recovered/Resolved]
  - Weight decreased [Unknown]
  - Peritonitis [Not Recovered/Not Resolved]
  - Vomiting [Unknown]
  - Uterine necrosis [Not Recovered/Not Resolved]
  - Cervicitis [Not Recovered/Not Resolved]
  - Serositis [Not Recovered/Not Resolved]
  - White blood cell count decreased [Unknown]
  - Malaise [Unknown]
  - Endometritis [Not Recovered/Not Resolved]
  - Peritoneal fibrosis [Not Recovered/Not Resolved]
  - Hyperhidrosis [Unknown]
  - Decreased appetite [Not Recovered/Not Resolved]
  - Asthenia [Recovered/Resolved]

NARRATIVE: CASE EVENT DATE: 20180713
